FAERS Safety Report 7204072-0 (Version None)
Quarter: 2010Q4

REPORT INFORMATION
  Report Type: 
  Country: None (occurrence: None)
  Receive Date: 20101230
  Receipt Date: 20101220
  Transmission Date: 20110411
  Serious: Yes (Death, Hospitalization, Other)
  Sender: FDA-Public Use
  Company Number: US-ELI_LILLY_AND_COMPANY-US201012000539

PATIENT
  Sex: Male

DRUGS (3)
  1. SYMBYAX [Suspect]
     Indication: DEPRESSION
     Dosage: 1 D/F, EACH MORNING
  2. DEXADRIN [Concomitant]
     Indication: ATTENTION DEFICIT/HYPERACTIVITY DISORDER
     Dosage: 5 MG, 3/D
     Route: 048
     Dates: start: 20080101
  3. VALIUM [Concomitant]
     Indication: ANXIETY
     Dosage: 5 MG, 4/D
     Route: 048
     Dates: start: 20080101

REACTIONS (4)
  - COMPLETED SUICIDE [None]
  - MULTIPLE FRACTURES [None]
  - OFF LABEL USE [None]
  - ROAD TRAFFIC ACCIDENT [None]
